FAERS Safety Report 8839243 (Version 1)
Quarter: 2012Q4

REPORT INFORMATION
  Report Type: 
  Country: NL (occurrence: NL)
  Receive Date: 20121015
  Receipt Date: 20121015
  Transmission Date: 20130627
  Serious: Yes (Hospitalization)
  Sender: FDA-Public Use
  Company Number: NL-JNJFOC-20121003327

PATIENT
  Age: 49 Year
  Sex: Male

DRUGS (7)
  1. REMICADE [Suspect]
     Indication: CROHN^S DISEASE
     Dosage: dosage was reported as ^once a day^
     Route: 042
     Dates: start: 20010112, end: 20010112
  2. PREDNISOLONE [Concomitant]
     Route: 065
  3. SALOFALK [Concomitant]
     Route: 065
  4. DIDRONEL-KIT [Concomitant]
     Route: 065
  5. RANITIDINUM [Concomitant]
     Route: 065
  6. TIMOPTOL [Concomitant]
     Route: 065
  7. NEORAL [Concomitant]
     Route: 065

REACTIONS (3)
  - Pulmonary embolism [Recovered/Resolved]
  - Dyspnoea exertional [Recovered/Resolved]
  - Crohn^s disease [Recovered/Resolved]
